FAERS Safety Report 20741119 (Version 1)
Quarter: 2022Q2

REPORT INFORMATION
  Report Type: Spontaneous
  Country: US (occurrence: US)
  Receive Date: 20220422
  Receipt Date: 20220422
  Transmission Date: 20220721
  Serious: Yes (Other)
  Sender: FDA-Public Use
  Company Number: US-BRISTOL-MYERS SQUIBB COMPANY-2022-025304

PATIENT
  Age: 79 Year
  Sex: Male

DRUGS (1)
  1. REVLIMID [Suspect]
     Active Substance: LENALIDOMIDE
     Indication: Product used for unknown indication
     Dosage: 1 CAPSULE BY MOUTH DAILY FOR 3 CONSECUTIVE DAYS ON, THEN 1 DAY OFF FOR 2 WEEKS. THEN TAKE 2 WEEKS OF
     Route: 048

REACTIONS (2)
  - Neuropathy peripheral [Unknown]
  - Intentional product use issue [Unknown]
